FAERS Safety Report 8290428-4 (Version None)
Quarter: 2012Q2

REPORT INFORMATION
  Report Type: 
  Country: None (occurrence: None)
  Receive Date: 20120417
  Receipt Date: 20110712
  Transmission Date: 20120825
  Serious: No
  Sender: FDA-Public Use
  Company Number: US-ASTRAZENECA-2011SE41997

PATIENT
  Age: 42 Year
  Sex: Male

DRUGS (4)
  1. NEXIUM [Suspect]
     Route: 048
  2. SEROQUEL XR [Suspect]
     Indication: ANXIETY
     Dosage: 150 MG, TWO TIMES A DAY
     Route: 048
  3. SEROQUEL XR [Suspect]
     Indication: SLEEP DISORDER
     Dosage: 150 MG, TWO TIMES A DAY
     Route: 048
  4. SEROQUEL XR [Suspect]
     Indication: DEPRESSION
     Dosage: 150 MG, TWO TIMES A DAY
     Route: 048

REACTIONS (2)
  - SOMNOLENCE [None]
  - OFF LABEL USE [None]
